FAERS Safety Report 5926419-5 (Version None)
Quarter: 2008Q4

REPORT INFORMATION
  Report Type: 
  Country: None (occurrence: None)
  Receive Date: 20081017
  Receipt Date: 20081006
  Transmission Date: 20090506
  Serious: Yes (Hospitalization)
  Sender: FDA-Public Use
  Company Number: GXKR2008GB09538

PATIENT
  Age: 56 Year
  Sex: Male

DRUGS (10)
  1. GABAPENTIN [Suspect]
     Dosage: 300 MG TID
  2. HALOPERIDOL [Suspect]
  3. FENTANYL-100 [Suspect]
     Indication: PAIN
     Dosage: ORAL
     Route: 048
  4. HYDROMORPHONE HCL [Suspect]
     Indication: ANALGESIA
     Dosage: 25 MG QD SUBCUTANEOUS
     Route: 058
  5. MORPHINE [Suspect]
     Indication: ANALGESIA
  6. OXYCONTIN [Suspect]
     Indication: ANALGESIA
     Dosage: 80 MG BID
  7. ACETAMINOPHEN [Suspect]
     Dosage: 1 G QID
  8. RADIOTHERAPY (NO INGREDIENTS/SUBSTANCES) [Concomitant]
  9. ALFENTANIL [Concomitant]
  10. HYDROMORPHONE HCL [Concomitant]

REACTIONS (22)
  - ABDOMINAL PAIN [None]
  - AGGRESSION [None]
  - AGITATION [None]
  - BACK PAIN [None]
  - DISCOMFORT [None]
  - DISEASE PROGRESSION [None]
  - DRUG EFFECT DECREASED [None]
  - DRUG WITHDRAWAL SYNDROME [None]
  - FEELING ABNORMAL [None]
  - HYPERHIDROSIS [None]
  - HYPERVENTILATION [None]
  - INFECTION [None]
  - MALIGNANT NEOPLASM PROGRESSION [None]
  - MELAENA [None]
  - METASTATIC NEOPLASM [None]
  - MOVEMENT DISORDER [None]
  - MYALGIA [None]
  - PILOERECTION [None]
  - RENAL IMPAIRMENT [None]
  - SPINAL CORD COMPRESSION [None]
  - TACHYCARDIA [None]
  - THERAPEUTIC AGENT TOXICITY [None]
